FAERS Safety Report 19900237 (Version 10)
Quarter: 2022Q1

REPORT INFORMATION
  Report Type: Spontaneous
  Country: PL (occurrence: PL)
  Receive Date: 20210930
  Receipt Date: 20220208
  Transmission Date: 20220423
  Serious: Yes (Other)
  Sender: FDA-Public Use
  Company Number: PL-MENARINI-PL-MEN-079698

PATIENT
  Age: 60 Year
  Sex: Female

DRUGS (16)
  1. DICLOFENAC SODIUM [Suspect]
     Active Substance: DICLOFENAC SODIUM
     Indication: Osteoarthritis
     Dosage: UNK, (APPLYING)
     Route: 065
  2. DICLOFENAC SODIUM [Suspect]
     Active Substance: DICLOFENAC SODIUM
     Indication: Arthralgia
  3. DICLOFENAC SODIUM [Suspect]
     Active Substance: DICLOFENAC SODIUM
     Indication: Arthralgia
  4. DICLOFENAC SODIUM [Suspect]
     Active Substance: DICLOFENAC SODIUM
     Indication: Analgesic intervention supportive therapy
  5. PANTOPRAZOLE [Suspect]
     Active Substance: PANTOPRAZOLE
     Indication: Osteoarthritis
     Dosage: UNK UNK, UNKNOWN
     Route: 065
  6. PANTOPRAZOLE [Suspect]
     Active Substance: PANTOPRAZOLE
     Indication: Arthralgia
  7. KETOPROFEN [Suspect]
     Active Substance: KETOPROFEN
     Indication: Arthralgia
     Dosage: UNK UNK, UNKNOWN (APPLYING)
     Route: 065
  8. KETOPROFEN [Suspect]
     Active Substance: KETOPROFEN
     Indication: Osteoarthritis
  9. KETOPROFEN [Suspect]
     Active Substance: KETOPROFEN
     Indication: Arthralgia
  10. KETOPROFEN [Suspect]
     Active Substance: KETOPROFEN
     Indication: Analgesic intervention supportive therapy
  11. ETORICOXIB [Suspect]
     Active Substance: ETORICOXIB
     Indication: Osteoarthritis
     Dosage: UNK
     Route: 065
  12. ETORICOXIB [Suspect]
     Active Substance: ETORICOXIB
     Indication: Osteoarthritis
  13. ETORICOXIB [Suspect]
     Active Substance: ETORICOXIB
     Indication: Arthralgia
  14. ETORICOXIB [Suspect]
     Active Substance: ETORICOXIB
     Indication: Arthralgia
  15. RAMIPRIL [Concomitant]
     Active Substance: RAMIPRIL
     Indication: Hypertension
     Dosage: 2.5 MILLIGRAM, QD (2.5 MILLIGRAM, DAILY)
     Route: 065
  16. RAMIPRIL [Concomitant]
     Active Substance: RAMIPRIL
     Indication: Hypertension

REACTIONS (4)
  - Blood pressure increased [Recovered/Resolved]
  - Oedema peripheral [Recovered/Resolved]
  - Dyspepsia [Recovered/Resolved]
  - Abdominal pain upper [Recovered/Resolved]
